FAERS Safety Report 5224305-X (Version None)
Quarter: 2007Q1

REPORT INFORMATION
  Report Type: 
  Country: None (occurrence: None)
  Receive Date: 20070130
  Receipt Date: 20070123
  Transmission Date: 20070707
  Serious: Yes (Hospitalization)
  Sender: FDA-Public Use
  Company Number: FR-ROXANE LABORATORIES, INC-2007-BP-01274RO

PATIENT
  Age: 85 Year
  Sex: Male

DRUGS (2)
  1. PREDNISONE [Suspect]
     Indication: TEMPORAL ARTERITIS
     Dosage: 35 MG/DAY
     Dates: start: 20030301
  2. PREDNISONE [Suspect]
     Dates: start: 20030601

REACTIONS (5)
  - ABDOMINAL PAIN [None]
  - DIARRHOEA [None]
  - STRONGYLOIDIASIS [None]
  - SYSTEMIC INFLAMMATORY RESPONSE SYNDROME [None]
  - WEIGHT DECREASED [None]
